FAERS Safety Report 19219124 (Version 1)
Quarter: 2021Q2

REPORT INFORMATION
  Report Type: Spontaneous
  Country: US (occurrence: US)
  Receive Date: 20210506
  Receipt Date: 20210506
  Transmission Date: 20210717
  Serious: No
  Sender: FDA-Public Use
  Company Number: US-ORGANON-O2104USA002331

PATIENT
  Age: 18 Year
  Sex: Female
  Weight: 150.13 kg

DRUGS (2)
  1. NEXPLANON [Suspect]
     Active Substance: ETONOGESTREL
     Dosage: 1 IMPLANT EVERY 3 YEARS
     Route: 059
     Dates: start: 20210409
  2. NEXPLANON [Suspect]
     Active Substance: ETONOGESTREL
     Indication: CONTRACEPTION
     Dosage: 1 IMPLANT EVERY 3 YEARS
     Route: 059
     Dates: start: 20191001, end: 20210409

REACTIONS (5)
  - Device breakage [Recovered/Resolved]
  - Headache [Unknown]
  - Complication of device removal [Recovered/Resolved]
  - Menstrual disorder [Unknown]
  - Wrong technique in device usage process [Unknown]
